FAERS Safety Report 7379961-7 (Version None)
Quarter: 2011Q1

REPORT INFORMATION
  Report Type: 
  Country: None (occurrence: None)
  Receive Date: 20110329
  Receipt Date: 20110321
  Transmission Date: 20110831
  Serious: Yes (Other)
  Sender: FDA-Public Use
  Company Number: US-AMGEN-USASP2011015250

PATIENT
  Age: 63 Year
  Sex: Female

DRUGS (3)
  1. SENSIPAR [Suspect]
     Indication: HYPERPARATHYROIDISM SECONDARY
     Dates: start: 20100101
  2. ZEMPLAR [Concomitant]
  3. SYNTHROID [Concomitant]
     Dosage: 0.5 UNK, UNK

REACTIONS (3)
  - BLOOD PHOSPHORUS ABNORMAL [None]
  - BLOOD PARATHYROID HORMONE ABNORMAL [None]
  - THYROID FUNCTION TEST ABNORMAL [None]
